FAERS Safety Report 18715195 (Version 1)
Quarter: 2021Q1

REPORT INFORMATION
  Report Type: Spontaneous
  Country: US (occurrence: US)
  Receive Date: 20210108
  Receipt Date: 20210108
  Transmission Date: 20210419
  Serious: No
  Sender: FDA-Public Use
  Company Number: US-JNJFOC-20201249974

PATIENT
  Age: 37 Year
  Sex: Female
  Weight: 59.02 kg

DRUGS (1)
  1. WOMENS ROGAINE UNSCENTED [Suspect]
     Active Substance: MINOXIDIL
     Indication: ALOPECIA
     Dosage: DOSE: HALF A CAPFUL ?PRODUCT LAST ADMINISTERED ON 16?DEC?2020
     Route: 061
     Dates: start: 20201211

REACTIONS (2)
  - Application site vesicles [Recovering/Resolving]
  - Application site acne [Recovering/Resolving]

NARRATIVE: CASE EVENT DATE: 20201216
